FAERS Safety Report 8661313 (Version 4)
Quarter: 2012Q4

REPORT INFORMATION
  Report Type: 
  Country: DE (occurrence: DE)
  Receive Date: 20120712
  Receipt Date: 20121012
  Transmission Date: 20130627
  Serious: Yes (Other)
  Sender: FDA-Public Use
  Company Number: PHHY2012DE059327

PATIENT
  Age: 71 Year
  Sex: Female

DRUGS (2)
  1. ZOMETA [Suspect]
     Dosage: 4 mg once monthly
     Dates: start: 201005, end: 20120704
  2. ZOMETA [Suspect]
     Dosage: 4 mg, monthly
     Dates: start: 20120917

REACTIONS (1)
  - Osteonecrosis [Unknown]
